FAERS Safety Report 24782982 (Version 2)
Quarter: 2025Q1

REPORT INFORMATION
  Report Type: Spontaneous
  Country: US (occurrence: US)
  Receive Date: 20241227
  Receipt Date: 20250103
  Transmission Date: 20250409
  Serious: Yes (Other)
  Sender: RANBAXY
  Company Number: US-SUN PHARMACEUTICAL INDUSTRIES LTD-2024R1-485156

PATIENT
  Age: 4 Year
  Sex: Male
  Weight: 15 kg

DRUGS (8)
  1. BACTRIM [Suspect]
     Active Substance: SULFAMETHOXAZOLE\TRIMETHOPRIM
     Indication: Infection
     Route: 048
     Dates: start: 20230622, end: 20230703
  2. MELATONIN [Suspect]
     Active Substance: MELATONIN
     Indication: Insomnia
     Dosage: 2 MILLIGRAM, DAILY
     Route: 065
     Dates: start: 20230616, end: 20230703
  3. NEURONTIN [Suspect]
     Active Substance: GABAPENTIN
     Indication: Pain in extremity
     Dosage: 25 MILLIGRAM, TID
     Route: 048
     Dates: start: 20230616, end: 20230703
  4. PEGASPARGASE [Suspect]
     Active Substance: PEGASPARGASE
     Indication: Leukaemia
     Dosage: 652.5 INTERNATIONAL UNIT, QD
     Route: 065
     Dates: start: 20230525, end: 20230525
  5. DEXAMETHASONE [Suspect]
     Active Substance: DEXAMETHASONE
     Indication: Product used for unknown indication
     Dosage: 6.5 MILLIGRAM, BID
     Route: 042
  6. VINCRISTINE SULFATE [Suspect]
     Active Substance: VINCRISTINE SULFATE
     Indication: Leukaemia
     Dosage: 0.98 MILLIGRAM, WEEKLY
     Route: 042
     Dates: start: 20230527, end: 20230612
  7. MITOXANTRONE HYDROCHLORIDE [Suspect]
     Active Substance: MITOXANTRONE HYDROCHLORIDE
     Indication: Leukaemia
     Dosage: 6.4 MILLIGRAM, DAILY
     Route: 042
     Dates: start: 20230525, end: 20230526
  8. DEXAMETHASONE SODIUM PHOSPHATE [Concomitant]
     Active Substance: DEXAMETHASONE SODIUM PHOSPHATE
     Indication: Leukaemia
     Dosage: 6.25 MILLIGRAM, BID
     Route: 065
     Dates: start: 20240525, end: 20240529

REACTIONS (1)
  - Hepatic cytolysis [Unknown]

NARRATIVE: CASE EVENT DATE: 20230614
